FAERS Safety Report 4607256-0 (Version None)
Quarter: 2005Q1

REPORT INFORMATION
  Report Type: 
  Country: None (occurrence: None)
  Receive Date: 20050314
  Receipt Date: 20050304
  Transmission Date: 20050727
  Serious: Yes (Congenital Anomaly)
  Sender: FDA-Public Use
  Company Number: CA-MERCK-0503USA00788

PATIENT
  Weight: 2 kg

DRUGS (1)
  1. COZAAR [Suspect]
     Indication: HYPERTENSION

REACTIONS (2)
  - DRUG EXPOSURE DURING PREGNANCY [None]
  - SKULL MALFORMATION [None]
